FAERS Safety Report 6155364-8 (Version None)
Quarter: 2009Q2

REPORT INFORMATION
  Report Type: 
  Country: None (occurrence: None)
  Receive Date: 20090415
  Receipt Date: 20090408
  Transmission Date: 20091009
  Serious: Yes (Other)
  Sender: FDA-Public Use
  Company Number: US-AVENTIS-200912997US

PATIENT
  Sex: Female

DRUGS (5)
  1. LANTUS [Suspect]
     Dosage: DOSE: 45 UNITS AT NIGHT
     Route: 058
     Dates: start: 20060101
  2. OPTICLIK (INSULIN INJECTION PEN) [Suspect]
     Dates: start: 20060101
  3. GLUCOPHAGE [Concomitant]
  4. FOSINOPRIL SODIUM [Concomitant]
     Dosage: DOSE: 1 TAB
  5. ATENOLOL [Concomitant]
     Dosage: DOSE: 1 TAB

REACTIONS (3)
  - FALL [None]
  - FOOT FRACTURE [None]
  - TIBIA FRACTURE [None]
